FAERS Safety Report 13269600 (Version 3)
Quarter: 2017Q1

REPORT INFORMATION
  Report Type: Report from Study
  Country: US (occurrence: US)
  Receive Date: 20170224
  Receipt Date: 20170307
  Transmission Date: 20170428
  Serious: Yes (Hospitalization, Other)
  Sender: FDA-Public Use
  Company Number: US-BEH-2017078166

PATIENT
  Age: 58 Year
  Sex: Female
  Weight: 65.76 kg

DRUGS (1)
  1. HIZENTRA [Suspect]
     Active Substance: HUMAN IMMUNOGLOBULIN G
     Indication: IMMUNODEFICIENCY COMMON VARIABLE
     Dosage: 8 G, TOT
     Route: 058
     Dates: start: 201701, end: 201701

REACTIONS (17)
  - Balance disorder [Recovered/Resolved]
  - Head discomfort [Recovered/Resolved]
  - Dizziness [Recovered/Resolved]
  - Infusion site erythema [Recovered/Resolved]
  - Infusion site inflammation [Recovered/Resolved]
  - Infusion site haemorrhage [Recovered/Resolved]
  - Dysuria [Recovered/Resolved]
  - Fall [Recovered/Resolved]
  - Chest pain [Recovered/Resolved]
  - Constipation [Recovered/Resolved]
  - Musculoskeletal stiffness [Recovered/Resolved]
  - Myocardial infarction [Recovered/Resolved]
  - Hospitalisation [Unknown]
  - Unevaluable event [Unknown]
  - Headache [Recovered/Resolved]
  - Infusion site rash [Recovered/Resolved]
  - Unevaluable event [Unknown]

NARRATIVE: CASE EVENT DATE: 201701
